FAERS Safety Report 10072798 (Version 1)
Quarter: 2014Q2

REPORT INFORMATION
  Report Type: Spontaneous
  Country: US (occurrence: US)
  Receive Date: 20140411
  Receipt Date: 20140411
  Transmission Date: 20141212
  Serious: No
  Sender: FDA-Public Use
  Company Number: US-MYLANLABS-2013S1022848

PATIENT
  Sex: Female

DRUGS (1)
  1. DILTIAZEM HCL EXTENDED RELEASE CAPSULES, USP [Suspect]
     Indication: BLOOD PRESSURE

REACTIONS (2)
  - Blood pressure increased [Not Recovered/Not Resolved]
  - Medication residue present [Not Recovered/Not Resolved]
